FAERS Safety Report 7602513-8 (Version None)
Quarter: 2011Q3

REPORT INFORMATION
  Report Type: 
  Country: None (occurrence: None)
  Receive Date: 20110707
  Receipt Date: 20110406
  Transmission Date: 20111222
  Serious: Yes (Hospitalization)
  Sender: FDA-Public Use
  Company Number: US-CYPR-2010-000014

PATIENT
  Sex: Male
  Weight: 91.173 kg

DRUGS (12)
  1. CLOPIDOGREL OR PLACEBO 75 MG (BRISTOL-MYERS SQUIBB/SANOFI-AVENTIS) [Suspect]
     Indication: ANTIPLATELET THERAPY
     Dosage: (75 MG QD ORAL)
     Route: 048
     Dates: start: 20101218, end: 20101225
  2. ATARAX [Concomitant]
  3. ASPIRIN [Suspect]
     Indication: CORONARY ARTERY DISEASE
     Dosage: (81 MG QD ORAL) ; (81 MG QD ORAL) ; (325 MG QD ORAL)
     Route: 048
     Dates: end: 20101225
  4. ASPIRIN [Suspect]
     Indication: CORONARY ARTERY DISEASE
     Dosage: (81 MG QD ORAL) ; (81 MG QD ORAL) ; (325 MG QD ORAL)
     Route: 048
     Dates: start: 20110101, end: 20110115
  5. ASPIRIN [Suspect]
     Indication: CORONARY ARTERY DISEASE
     Dosage: (81 MG QD ORAL) ; (81 MG QD ORAL) ; (325 MG QD ORAL)
     Route: 048
     Dates: start: 20091204
  6. AMBIEN [Concomitant]
  7. LISINOPRIL [Concomitant]
  8. PREDNISONE [Concomitant]
  9. OXYCODONE HCL [Concomitant]
  10. CYPHER STENT [Concomitant]
  11. ATORVASTATIN [Concomitant]
  12. NORVASC [Concomitant]

REACTIONS (2)
  - SPLENIC RUPTURE [None]
  - MULTI-ORGAN FAILURE [None]
